FAERS Safety Report 10258980 (Version 2)
Quarter: 2014Q2

REPORT INFORMATION
  Report Type: Spontaneous
  Country: FR (occurrence: FR)
  Receive Date: 20140625
  Receipt Date: 20140627
  Transmission Date: 20141212
  Serious: Yes (Hospitalization)
  Sender: FDA-Public Use
  Company Number: FR-B.I. PHARMACEUTICALS,INC./RIDGEFIELD-2014-BI-28279FF

PATIENT
  Age: 87 Year
  Sex: Female

DRUGS (10)
  1. PRADAXA [Suspect]
     Indication: ATRIAL FIBRILLATION
     Dosage: 220 MG
     Route: 048
     Dates: start: 2014
  2. HEMIGOXINE [Concomitant]
     Route: 065
  3. DIFFU K [Concomitant]
     Route: 065
  4. PAROXETINE [Concomitant]
     Route: 065
  5. NOCTAMIDE [Concomitant]
     Route: 065
  6. FUNGIZONE [Concomitant]
     Route: 065
  7. DOLIPRANE [Concomitant]
     Route: 065
  8. LASILIX SPECAIL [Concomitant]
     Dosage: STRENGTH: 500
     Route: 065
  9. LASILIX SPECAIL [Concomitant]
     Dosage: STRENGTH: 80
     Route: 065
  10. ATHYMIL [Concomitant]
     Dosage: STRENGTH: 10
     Route: 065

REACTIONS (4)
  - General physical health deterioration [Unknown]
  - Decreased appetite [Not Recovered/Not Resolved]
  - Adverse event [Unknown]
  - Abdominal pain upper [Unknown]
